FAERS Safety Report 7910584-4 (Version None)
Quarter: 2011Q4

REPORT INFORMATION
  Report Type: 
  Country: None (occurrence: None)
  Receive Date: 20111111
  Receipt Date: 20111110
  Transmission Date: 20120403
  Serious: Yes (Death)
  Sender: FDA-Public Use
  Company Number: PHEH2011US07830

PATIENT
  Sex: Female
  Weight: 79 kg

DRUGS (1)
  1. METOPIRONE [Suspect]
     Dosage: UNK UKN, UNK

REACTIONS (2)
  - ADRENAL CARCINOMA [None]
  - DISEASE PROGRESSION [None]
